FAERS Safety Report 9537989 (Version 4)
Quarter: 2013Q4

REPORT INFORMATION
  Report Type: Report from Study
  Country: US (occurrence: US)
  Receive Date: 20130919
  Receipt Date: 20131023
  Transmission Date: 20140711
  Serious: Yes (Hospitalization)
  Sender: FDA-Public Use
  Company Number: US-ROCHE-1259454

PATIENT
  Age: 71 Year
  Sex: Female
  Weight: 59.93 kg

DRUGS (10)
  1. TRASTUZUMAB [Suspect]
     Indication: BREAST CANCER METASTATIC
     Dosage: DATE OF LAST DOSE PRIOR TO SAE ONSET: 01/AUG/2013
     Route: 042
     Dates: start: 20080825
  2. COREG [Concomitant]
     Route: 065
     Dates: start: 20090319
  3. SIMVASTATIN [Concomitant]
     Route: 065
     Dates: start: 20000630
  4. TRAZODONE [Concomitant]
     Route: 065
     Dates: start: 20110116
  5. OMEPRAZOLE [Concomitant]
     Route: 065
     Dates: start: 20110114
  6. FENTANYL PATCH [Concomitant]
     Route: 065
     Dates: start: 20130320
  7. ASPIRIN [Concomitant]
     Route: 065
     Dates: start: 20110818
  8. LISINOPRIL [Concomitant]
     Route: 065
     Dates: start: 200908
  9. PLACEBO [Suspect]
     Indication: BREAST CANCER METASTATIC
     Dosage: LOADING DOSE
     Route: 042
     Dates: start: 20090517
  10. PLACEBO [Suspect]
     Dosage: MAINTENANCE DOSE?ON 01/AUG/2013, SHE RECEIVED HER LAST DOSE OF BLINDED PERTUZUMAB PRIOR TO DEVELOPIN
     Route: 042
     Dates: start: 20090607

REACTIONS (1)
  - Pneumonia [Recovered/Resolved with Sequelae]
